FAERS Safety Report 15208443 (Version 2)
Quarter: 2018Q3

REPORT INFORMATION
  Report Type: Spontaneous
  Country: DE (occurrence: DE)
  Receive Date: 20180727
  Receipt Date: 20180928
  Transmission Date: 20181010
  Serious: Yes (Death, Hospitalization)
  Sender: FDA-Public Use
  Company Number: PHHY2016DE187094

PATIENT
  Age: 55 Year
  Sex: Male
  Weight: 74 kg

DRUGS (11)
  1. OXALIPLATIN. [Suspect]
     Active Substance: OXALIPLATIN
     Indication: COLORECTAL CANCER
     Dosage: 157 MG, Q2W
     Route: 042
     Dates: start: 20150908, end: 20150908
  2. FOLINIC ACID [Concomitant]
     Active Substance: LEUCOVORIN
     Indication: COLORECTAL CANCER
     Dosage: 370 MG, Q2W
     Route: 042
     Dates: start: 20150908, end: 20160907
  3. 5?FLUOROURACIL [Suspect]
     Active Substance: FLUOROURACIL
     Dosage: 740 MG, Q2W
     Route: 040
     Dates: start: 20150908, end: 20150909
  4. 5?FLUOROURACIL [Suspect]
     Active Substance: FLUOROURACIL
     Dosage: 1110 MG, Q2W (MOST RECENT DOSE PRIOR TO SAE ON 06/SEP/2016)
     Route: 042
     Dates: start: 20160906, end: 20160907
  5. BEVACIZUMAB. [Suspect]
     Active Substance: BEVACIZUMAB
     Dosage: 370 MG, Q2W (MOST RECENT DOSE PRIOR TO SAE ON 06/SEP/2016)
     Route: 042
     Dates: start: 20160906, end: 20160906
  6. BEVACIZUMAB. [Suspect]
     Active Substance: BEVACIZUMAB
     Indication: COLORECTAL CANCER
     Dosage: 370 MG, Q2W
     Route: 042
     Dates: start: 20150908, end: 20150908
  7. 5?FLUOROURACIL [Concomitant]
     Active Substance: FLUOROURACIL
     Indication: COLORECTAL CANCER
     Dosage: 740 MG, Q2W
     Route: 040
     Dates: start: 20150908, end: 20150909
  8. OXALIPLATIN. [Suspect]
     Active Substance: OXALIPLATIN
     Dosage: 157 MG, Q2W (MOST RECENT DOSE PRIOR TO SAE ON 06/SEP/2016)
     Route: 042
     Dates: start: 20160906, end: 20160906
  9. 5?FLUOROURACIL [Concomitant]
     Active Substance: FLUOROURACIL
     Dosage: 470 MG, Q2W
     Route: 040
     Dates: start: 20160906, end: 20160907
  10. 5?FLUOROURACIL [Suspect]
     Active Substance: FLUOROURACIL
     Indication: COLORECTAL CANCER
     Dosage: 1110 MG, Q2W
     Route: 042
     Dates: start: 20150908, end: 20150909
  11. 5?FLUOROURACIL [Suspect]
     Active Substance: FLUOROURACIL
     Dosage: 470 MG, Q2W
     Route: 040
     Dates: start: 20160906, end: 20160907

REACTIONS (4)
  - Pulmonary sepsis [Fatal]
  - Pneumonia [Fatal]
  - Anaemia [Not Recovered/Not Resolved]
  - Thrombocytopenia [Not Recovered/Not Resolved]

NARRATIVE: CASE EVENT DATE: 20160914
